FAERS Safety Report 7015215-6 (Version None)
Quarter: 2010Q3

REPORT INFORMATION
  Report Type: 
  Country: None (occurrence: None)
  Receive Date: 20100927
  Receipt Date: 20100916
  Transmission Date: 20110219
  Serious: Yes (Hospitalization, Other)
  Sender: FDA-Public Use
  Company Number: PHFR2010GB02563

PATIENT
  Sex: Male

DRUGS (7)
  1. CLOZARIL [Suspect]
     Indication: SCHIZOPHRENIA
     Dosage: 400MG/DAY
     Route: 048
     Dates: start: 20000113
  2. SIMVASTATIN [Concomitant]
     Dosage: 20MG/DAY
     Route: 048
  3. AMLODIPINE [Concomitant]
     Indication: HYPERTENSION
     Dosage: 2.5MG/DAY
     Route: 048
  4. SENNA [Concomitant]
     Dosage: 7.5MG/DAY
     Route: 048
  5. ASCORBIC ACID [Concomitant]
     Dosage: 100MG/DAY
     Route: 048
  6. VITAMIN B6 [Concomitant]
     Dosage: ONE TAB A DAY
     Route: 048
  7. VALPROATE SODIUM [Concomitant]
     Indication: EPILEPSY
     Dosage: 1000MG
     Route: 048

REACTIONS (5)
  - DEMENTIA [None]
  - DYSPNOEA [None]
  - INFECTION [None]
  - LYMPHOMA [None]
  - PULMONARY OEDEMA [None]
